FAERS Safety Report 4498573-6 (Version None)
Quarter: 2004Q4

REPORT INFORMATION
  Report Type: 
  Country: None (occurrence: None)
  Receive Date: 20041108
  Receipt Date: 20041028
  Transmission Date: 20050328
  Serious: Yes (Other)
  Sender: FDA-Public Use
  Company Number: 2004242196US

PATIENT
  Age: 24 Year
  Sex: Female
  Weight: 129.3 kg

DRUGS (2)
  1. DEPO-PROVERA [Suspect]
     Indication: CONTRACEPTION
     Dosage: SEE IMAGE
     Route: 030
     Dates: start: 19960401, end: 19960401
  2. DEPO-PROVERA [Suspect]
     Indication: CONTRACEPTION
     Dosage: SEE IMAGE
     Route: 030
     Dates: start: 20010501, end: 20010501

REACTIONS (3)
  - AMENORRHOEA [None]
  - INFERTILITY FEMALE [None]
  - MENSTRUATION IRREGULAR [None]
